FAERS Safety Report 19163186 (Version 1)
Quarter: 2021Q2

REPORT INFORMATION
  Report Type: Spontaneous
  Country: US (occurrence: US)
  Receive Date: 20210421
  Receipt Date: 20210421
  Transmission Date: 20210717
  Serious: No
  Sender: FDA-Public Use
  Company Number: US-INSMED, INC.-2021-07849-US

PATIENT
  Age: 72 Year
  Sex: Female

DRUGS (1)
  1. ARIKAYCE [Suspect]
     Active Substance: AMIKACIN
     Indication: BRONCHIECTASIS
     Dosage: 590 MILLIGRAM, UNK
     Route: 055
     Dates: start: 20210124, end: 20210203

REACTIONS (8)
  - Secretion discharge [Recovered/Resolved]
  - Dysphonia [Unknown]
  - Cheilitis [Unknown]
  - Lip exfoliation [Unknown]
  - Off label use [Unknown]
  - Aphonia [Unknown]
  - Cough [Recovered/Resolved]
  - Stomatitis [Recovering/Resolving]

NARRATIVE: CASE EVENT DATE: 20210124
